FAERS Safety Report 13974489 (Version 2)
Quarter: 2017Q3

REPORT INFORMATION
  Report Type: Spontaneous
  Country: IT (occurrence: IT)
  Receive Date: 20170915
  Receipt Date: 20170921
  Transmission Date: 20171128
  Serious: Yes (Other)
  Sender: FDA-Public Use
  Company Number: IT-ABBVIE-17P-083-2102532-00

PATIENT
  Age: 81 Year
  Sex: Male

DRUGS (15)
  1. OMNIC [Concomitant]
     Active Substance: TAMSULOSIN HYDROCHLORIDE
     Indication: PRODUCT USED FOR UNKNOWN INDICATION
     Dosage: 0.4 MG, UNK
     Route: 048
  2. VITAMIN E DL-ALPHA [Concomitant]
     Indication: PRODUCT USED FOR UNKNOWN INDICATION
  3. AVODART [Concomitant]
     Active Substance: DUTASTERIDE
     Indication: PRODUCT USED FOR UNKNOWN INDICATION
     Dosage: .5 MG
     Route: 048
  4. CALCIUM PHOSPHATE DIBASIC [Concomitant]
     Indication: PRODUCT USED FOR UNKNOWN INDICATION
  5. PYRIDOXINE HYDROCHLORIDE. [Concomitant]
     Active Substance: PYRIDOXINE HYDROCHLORIDE
     Indication: PRODUCT USED FOR UNKNOWN INDICATION
     Dosage: UNK
  6. FOLIC ACID. [Concomitant]
     Active Substance: FOLIC ACID
     Indication: PRODUCT USED FOR UNKNOWN INDICATION
     Dosage: UNK
  7. CLARITHROMYCIN. [Suspect]
     Active Substance: CLARITHROMYCIN
     Indication: BACTERIAL INFECTION
     Dosage: UNK
     Route: 065
     Dates: start: 20160527
  8. PARIET [Concomitant]
     Active Substance: RABEPRAZOLE SODIUM
     Indication: PRODUCT USED FOR UNKNOWN INDICATION
     Dosage: 20 MG
     Route: 048
  9. VITAMIN B12 [Concomitant]
     Active Substance: CYANOCOBALAMIN
     Indication: PRODUCT USED FOR UNKNOWN INDICATION
  10. TITANIUM DIOXIDE. [Concomitant]
     Active Substance: TITANIUM DIOXIDE
     Indication: PRODUCT USED FOR UNKNOWN INDICATION
     Dosage: UNK
  11. ENAPREN [Concomitant]
     Active Substance: ENALAPRIL MALEATE
     Indication: ESSENTIAL HYPERTENSION
     Dosage: 20 MG
     Route: 048
  12. CLOPIDOGREL [Concomitant]
     Active Substance: CLOPIDOGREL BISULFATE
     Indication: PRODUCT USED FOR UNKNOWN INDICATION
     Dosage: 75 MG
  13. NIACIN. [Concomitant]
     Active Substance: NIACIN
     Indication: PRODUCT USED FOR UNKNOWN INDICATION
  14. GREEN TEA EXTRACT [Concomitant]
     Indication: PRODUCT USED FOR UNKNOWN INDICATION
  15. GELATIN [Concomitant]
     Active Substance: GELATIN
     Indication: PRODUCT USED FOR UNKNOWN INDICATION
     Dosage: UNK

REACTIONS (4)
  - Localised oedema [Unknown]
  - Abdominal pain upper [Unknown]
  - Lip oedema [Unknown]
  - Erythema [Unknown]

NARRATIVE: CASE EVENT DATE: 20160528
